FAERS Safety Report 4971540-1 (Version None)
Quarter: 2006Q2

REPORT INFORMATION
  Report Type: 
  Country: None (occurrence: None)
  Receive Date: 20060407
  Receipt Date: 20060327
  Transmission Date: 20061013
  Serious: Yes (Other)
  Sender: FDA-Public Use
  Company Number: 2006008211

PATIENT
  Age: 40 Year
  Sex: Female
  Weight: 72.5755 kg

DRUGS (4)
  1. SUDAFED 12 HOUR [Suspect]
     Indication: NASAL CONGESTION
     Dosage: 1 CAPLET ONCE A DAY IN THE MORNING, ORAL
     Route: 048
     Dates: start: 20051220, end: 20060107
  2. BENADRYL ALLERGY/SINUS (DIPHENHYDRAMINE, PSEUDOEPHEDRINE) [Suspect]
     Indication: SINUS CONGESTION
     Dosage: ORAL
     Route: 048
     Dates: start: 20051220, end: 20060108
  3. IBUPROFEN [Concomitant]
  4. PARACETAMOL [Concomitant]

REACTIONS (4)
  - DEPRESSION [None]
  - DYSPNOEA [None]
  - INSOMNIA [None]
  - TACHYCARDIA [None]
